FAERS Safety Report 5926092-6 (Version None)
Quarter: 2008Q4

REPORT INFORMATION
  Report Type: 
  Country: None (occurrence: None)
  Receive Date: 20081016
  Receipt Date: 20080929
  Transmission Date: 20090506
  Serious: Yes (Life-Threatening, Hospitalization, Other)
  Sender: FDA-Public Use
  Company Number: DSA_32377_2008

PATIENT
  Age: 81 Year
  Sex: Female
  Weight: 57 kg

DRUGS (12)
  1. RENIVEZE (RENIVEZE - ENALAPRIL MALEATE) (NOT SPECIFIED) [Suspect]
     Indication: HYPERTENSION
     Dosage: (5 MG QD ORAL)
     Route: 048
     Dates: start: 20080416, end: 20080815
  2. SINGULAIR [Suspect]
     Indication: DRUG USE FOR UNKNOWN INDICATION
     Dosage: (10 MG QD ORAL)
     Route: 048
     Dates: start: 20070801, end: 20080815
  3. MUCODYNE (MUCODYNE - CARBOCISTEINE) (NOT SPECIFIED) [Suspect]
     Indication: DRUG USE FOR UNKNOWN INDICATION
     Dosage: (500 MG TID ORAL)
     Route: 048
  4. URSO 250 [Suspect]
     Indication: CHOLELITHIASIS
     Dosage: (100 MG BID ORAL)
     Route: 048
     Dates: start: 19890101, end: 20080815
  5. BAYASPIRIN (BAYASPIRIN - ASPIRIN) (NOT SPECIFIED) [Suspect]
     Indication: CEREBRAL INFARCTION
     Dosage: (DF ORAL)
     Route: 048
     Dates: start: 20031201, end: 20080815
  6. UNIPHYL (UNIPHYL LA - THEOPHYLLINE ) (NOT SPECIFIED) [Suspect]
     Indication: DRUG USE FOR UNKNOWN INDICATION
     Dosage: (200 MG QD ORAL)
     Route: 048
     Dates: end: 20080805
  7. CLARITIN [Suspect]
     Indication: ASTHMA
     Dosage: (10 MG QD ORAL)
     Route: 048
     Dates: start: 20070801, end: 20080815
  8. CLARITIN [Suspect]
     Indication: RHINITIS ALLERGIC
     Dosage: (10 MG QD ORAL)
     Route: 048
     Dates: start: 20070801, end: 20080815
  9. AMLODIN (AMLODIN - AMLODIPINE BESILATE) (NOT SPECIFIED) [Suspect]
     Indication: HYPERTENSION
     Dosage: (2.5 MG BID ORAL)
     Route: 048
     Dates: end: 20080415
  10. INTAL [Suspect]
     Indication: DRUG USE FOR UNKNOWN INDICATION
     Dosage: (DF NASAL)
     Route: 045
     Dates: start: 20070801
  11. PULMICORT [Suspect]
     Indication: ASTHMA
     Dosage: (100 ?G BID, DF ORAL)
     Route: 048
     Dates: start: 20070801
  12. MOHRUS (MOHRUS - KETOPROFEN) (NOT SPECIFIED) [Suspect]
     Indication: DRUG USE FOR UNKNOWN INDICATION
     Dosage: (DF TOPICAL)
     Route: 061
     Dates: start: 19940101, end: 20080815

REACTIONS (6)
  - ALLERGIC GRANULOMATOUS ANGIITIS [None]
  - ANOREXIA [None]
  - LEUKOCYTOCLASTIC VASCULITIS [None]
  - MALAISE [None]
  - TUBULOINTERSTITIAL NEPHRITIS [None]
  - WHITE BLOOD CELL COUNT INCREASED [None]
